FAERS Safety Report 20301163 (Version 2)
Quarter: 2022Q1

REPORT INFORMATION
  Report Type: Report from Study
  Country: US (occurrence: US)
  Receive Date: 20220105
  Receipt Date: 20220204
  Transmission Date: 20220424
  Serious: No
  Sender: FDA-Public Use
  Company Number: US-SUNOVION-2021SUN004752

PATIENT
  Age: 72 Year
  Sex: Female

DRUGS (10)
  1. KYNMOBI [Suspect]
     Active Substance: APOMORPHINE HYDROCHLORIDE
     Indication: Parkinson^s disease
     Dosage: 10 MG
     Route: 060
     Dates: start: 20211220
  2. SINEMET [Concomitant]
     Active Substance: CARBIDOPA\LEVODOPA
     Dosage: 1 TAB, QID
     Route: 048
  3. INBRIJA [Concomitant]
     Active Substance: LEVODOPA
     Indication: Parkinson^s disease
     Dosage: 42 MG, AS NECESSARY (2 CAP, 5X/DAY)
     Route: 055
  4. AZILECT [Concomitant]
     Active Substance: RASAGILINE MESYLATE
     Indication: Parkinson^s disease
     Dosage: 1 MG, QD
     Route: 048
  5. NEUPRO [Concomitant]
     Active Substance: ROTIGOTINE
     Indication: Parkinson^s disease
     Dosage: 2 MG, QD (2 MG/24 HR TRANSDERMAL FILM, EXTENDED RELEASE)
     Route: 061
  6. NEUPRO [Concomitant]
     Active Substance: ROTIGOTINE
     Dosage: 4 MG, QD (4 MG/24 HR TRANSDERMAL FILM, EXTENDED RELEASE)
     Route: 061
  7. LIPITOR [Concomitant]
     Active Substance: ATORVASTATIN CALCIUM
     Dosage: 10 MG, QD
     Route: 048
  8. CALCIUM\VITAMIN D [Concomitant]
     Active Substance: CALCIUM\VITAMIN D
     Dosage: UNK
     Route: 065
  9. ZYRTEC [Concomitant]
     Active Substance: CETIRIZINE HYDROCHLORIDE
     Dosage: 10 MG, QD
     Route: 048
  10. COENZYME Q10 [Concomitant]
     Active Substance: DIETARY SUPPLEMENT\UBIDECARENONE
     Dosage: 100 MG, QD
     Route: 048

REACTIONS (3)
  - Nervousness [Recovered/Resolved]
  - Anxiety [Recovered/Resolved]
  - Hypertension [Recovered/Resolved]

NARRATIVE: CASE EVENT DATE: 20211220
